FAERS Safety Report 16183251 (Version 2)
Quarter: 2019Q2

REPORT INFORMATION
  Report Type: Spontaneous
  Country: TR (occurrence: TR)
  Receive Date: 20190411
  Receipt Date: 20190418
  Transmission Date: 20190711
  Serious: Yes (Hospitalization, Other)
  Sender: FDA-Public Use
  Company Number: TR-ACCORD-120686

PATIENT
  Age: 57 Year
  Sex: Male

DRUGS (4)
  1. MYCOPHENOLIC ACID. [Suspect]
     Active Substance: MYCOPHENOLIC ACID
     Indication: IMMUNOSUPPRESSANT DRUG THERAPY
     Dates: start: 201111, end: 201201
  2. TACROLIMUS. [Suspect]
     Active Substance: TACROLIMUS
     Indication: IMMUNOSUPPRESSANT DRUG THERAPY
     Dosage: REDUCED DOSE 4 MG NOV-2011 TO JAN-2012
     Dates: start: 201201
  3. PREDNISONE. [Suspect]
     Active Substance: PREDNISONE
     Indication: IMMUNOSUPPRESSANT DRUG THERAPY
     Dates: start: 201111
  4. TACROLIMUS. [Suspect]
     Active Substance: TACROLIMUS
     Indication: IMMUNOSUPPRESSANT DRUG THERAPY
     Dates: start: 201111, end: 201201

REACTIONS (5)
  - Renal transplant failure [Not Recovered/Not Resolved]
  - Cutaneous blastomycosis [Recovered/Resolved]
  - Polyomavirus-associated nephropathy [Not Recovered/Not Resolved]
  - Blastomycosis [Recovered/Resolved]
  - BK virus infection [Recovering/Resolving]

NARRATIVE: CASE EVENT DATE: 2012
